FAERS Safety Report 8350442-7 (Version None)
Quarter: 2012Q2

REPORT INFORMATION
  Report Type: 
  Country: None (occurrence: None)
  Receive Date: 20120510
  Receipt Date: 20120501
  Transmission Date: 20120825
  Serious: Yes (Hospitalization)
  Sender: FDA-Public Use
  Company Number: ES-BRISTOL-MYERS SQUIBB COMPANY-16566218

PATIENT
  Age: 62 Year
  Sex: Male
  Weight: 66 kg

DRUGS (12)
  1. ALPRAZOLAM [Concomitant]
  2. OMEPRAZOLE [Concomitant]
  3. DEXAMETHASONE [Concomitant]
     Dates: start: 20111108
  4. ACETAZOLAMIDE [Concomitant]
  5. NOLOTIL [Concomitant]
  6. CISPLATIN [Suspect]
     Indication: NON-SMALL CELL LUNG CANCER
     Route: 042
     Dates: start: 20111115, end: 20120103
  7. PEMETREXED DISODIUM [Suspect]
     Indication: NON-SMALL CELL LUNG CANCER
     Route: 042
     Dates: start: 20111115, end: 20120103
  8. FOLIC ACID [Concomitant]
     Dates: start: 20111108
  9. KEPPRA [Concomitant]
  10. VITAMIN B-12 [Concomitant]
     Dates: start: 20111108
  11. LORAZEPAM [Concomitant]
  12. DEXAMETHASONE [Concomitant]

REACTIONS (2)
  - CONVULSION [None]
  - ABDOMINAL PAIN [None]
